FAERS Safety Report 8772554 (Version 4)
Quarter: 2013Q2

REPORT INFORMATION
  Report Type: Report from Study
  Country: DE (occurrence: DE)
  Receive Date: 20120905
  Receipt Date: 20130618
  Transmission Date: 20140414
  Serious: Yes (Hospitalization)
  Sender: FDA-Public Use
  Company Number: DE-PFIZER INC-2012217545

PATIENT
  Age: 76 Year
  Sex: Male

DRUGS (6)
  1. PANTOPRAZOLE [Suspect]
     Indication: HELICOBACTER TEST POSITIVE
     Dosage: UNK
     Route: 065
     Dates: start: 20120626
  2. CLARITHROMYCIN [Suspect]
     Indication: HELICOBACTER TEST POSITIVE
     Dosage: UNK
     Route: 065
     Dates: start: 20120626
  3. AMOXICILLIN [Suspect]
     Indication: HELICOBACTER TEST POSITIVE
     Dosage: UNK
     Route: 065
     Dates: start: 20120626
  4. BLINDED THERAPY [Suspect]
     Indication: TYPE 2 DIABETES MELLITUS
     Dosage: UNK
     Route: 065
     Dates: start: 20101215, end: 20120713
  5. LANTUS [Suspect]
     Indication: TYPE 2 DIABETES MELLITUS
     Dosage: 8 MG, 1X/DAY
  6. ASPIRIN [Concomitant]
     Dosage: UNK

REACTIONS (1)
  - Renal failure acute [Recovered/Resolved]
